FAERS Safety Report 12795917 (Version 3)
Quarter: 2016Q4

REPORT INFORMATION
  Report Type: Spontaneous
  Country: JP (occurrence: JP)
  Receive Date: 20160929
  Receipt Date: 20161027
  Transmission Date: 20170207
  Serious: Yes (Other)
  Sender: FDA-Public Use
  Company Number: JP-SHIRE-JP201613305

PATIENT
  Age: 49 Year
  Sex: Male

DRUGS (9)
  1. URSO [Concomitant]
     Active Substance: URSODIOL
     Indication: GALLBLADDER POLYP
     Dosage: UNK, UNKNOWN
     Route: 048
     Dates: start: 20140522
  2. FOSRENOL [Suspect]
     Active Substance: LANTHANUM CARBONATE
     Indication: HYPERPHOSPHATAEMIA
     Dosage: 1500 MG, UNKNOWN (A DAY)
     Route: 048
     Dates: start: 201509
  3. FOSRENOL [Suspect]
     Active Substance: LANTHANUM CARBONATE
     Dosage: 2250 MG, UNKNOWN (DAILY)
     Route: 048
     Dates: start: 20151126, end: 20160303
  4. NEXIUM [Concomitant]
     Active Substance: ESOMEPRAZOLE MAGNESIUM
     Indication: GASTROOESOPHAGEAL REFLUX DISEASE
     Dosage: UNK, UNKNOWN
     Route: 048
     Dates: start: 20140522
  5. WARFARIN [Concomitant]
     Active Substance: WARFARIN
     Indication: CARDIAC VALVE PROSTHESIS USER
     Dosage: 2.25 MG, UNKNOWN
     Route: 048
     Dates: start: 20101012
  6. MYSLEE [Concomitant]
     Active Substance: ZOLPIDEM TARTRATE
     Indication: INSOMNIA
     Dosage: 10 MG, UNKNOWN
     Route: 048
     Dates: start: 20101102
  7. DEPAKENE [Concomitant]
     Active Substance: VALPROIC ACID
     Indication: MOOD ALTERED
     Dosage: 200 MG, UNKNOWN
     Route: 048
     Dates: start: 20131007
  8. FOSRENOL [Suspect]
     Active Substance: LANTHANUM CARBONATE
     Indication: HYPERPHOSPHATAEMIA
     Dosage: 1500 MG, UNKNOWN (DAILY)
     Route: 048
     Dates: start: 20130909
  9. LENDORMIN [Concomitant]
     Active Substance: BROTIZOLAM
     Indication: INSOMNIA
     Dosage: 0.25 MG, UNKNOWN
     Route: 048
     Dates: start: 20100826

REACTIONS (2)
  - Gastric ulcer [Recovered/Resolved]
  - Medication residue present [Recovering/Resolving]

NARRATIVE: CASE EVENT DATE: 201602
